FAERS Safety Report 7679813-9 (Version None)
Quarter: 2011Q3

REPORT INFORMATION
  Report Type: 
  Country: None (occurrence: None)
  Receive Date: 20110812
  Receipt Date: 20101229
  Transmission Date: 20111222
  Serious: Yes (Hospitalization, Other)
  Sender: FDA-Public Use
  Company Number: US-BAYER-201020603NA

PATIENT
  Age: 43 Year
  Sex: Female
  Weight: 195 kg

DRUGS (17)
  1. LOESTRIN FE 1/20 [Concomitant]
     Dosage: UNK
  2. YAZ [Suspect]
     Indication: MENORRHAGIA
  3. IRON [IRON] [Concomitant]
  4. ASCORBIC ACID [Concomitant]
  5. YAZ [Suspect]
     Indication: CONTRACEPTION
  6. COUMADIN [Concomitant]
  7. FERGON [Concomitant]
  8. YAZ [Suspect]
     Indication: PREMENSTRUAL SYNDROME
     Dates: start: 20090101, end: 20090615
  9. LOESTRIN FE 1/20 [Concomitant]
     Dosage: UNK
  10. PREVACID [Concomitant]
     Dosage: UNK
     Dates: start: 20091001
  11. LOESTRIN FE 1/20 [Concomitant]
     Indication: ANAEMIA
     Dosage: UNK
  12. LOESTRIN FE 1/20 [Concomitant]
     Dosage: UNK
  13. CELEXA [Concomitant]
  14. ATIVAN [Concomitant]
  15. AMBIEN [Concomitant]
  16. LOESTRIN 1.5/30 [Concomitant]
  17. LOVENOX [Concomitant]

REACTIONS (6)
  - ANXIETY [None]
  - DYSPNOEA [None]
  - CHEST PAIN [None]
  - PANIC ATTACK [None]
  - PULMONARY EMBOLISM [None]
  - DEEP VEIN THROMBOSIS [None]
